FAERS Safety Report 9742718 (Version 1)
Quarter: 2013Q4

REPORT INFORMATION
  Report Type: Spontaneous
  Country: US (occurrence: US)
  Receive Date: 20131210
  Receipt Date: 20131210
  Transmission Date: 20140711
  Serious: No
  Sender: FDA-Public Use
  Company Number: US-GILEAD-2009-0025767

PATIENT
  Sex: Female
  Weight: 86.18 kg

DRUGS (11)
  1. LETAIRIS [Suspect]
     Indication: PULMONARY ARTERIAL HYPERTENSION
     Route: 048
     Dates: start: 20091112
  2. LASIX [Concomitant]
  3. LEVOTHYROXINE [Concomitant]
  4. COUMADIN [Concomitant]
  5. NEXIUM [Concomitant]
  6. NORCO [Concomitant]
  7. OXYGEN [Concomitant]
  8. BACTRIM [Concomitant]
  9. AMBIEN [Concomitant]
  10. METOCLOPRAMIDE [Concomitant]
  11. REMODULIN [Concomitant]

REACTIONS (1)
  - Urticaria [Unknown]
